FAERS Safety Report 8049879-5 (Version None)
Quarter: 2012Q1

REPORT INFORMATION
  Report Type: 
  Country: None (occurrence: None)
  Receive Date: 20120117
  Receipt Date: 20120113
  Transmission Date: 20120608
  Serious: No
  Sender: FDA-Public Use
  Company Number: US-PFIZER INC-2011092990

PATIENT
  Sex: Male

DRUGS (9)
  1. MARCAINE [Suspect]
     Dosage: UNK
     Dates: start: 20110316, end: 20110316
  2. METFORMIN [Concomitant]
     Indication: DIABETES MELLITUS
     Dosage: 500 MG, UNK
     Route: 048
  3. ACETYLSALICYLIC ACID [Concomitant]
     Dosage: 81 MG, UNK
     Route: 048
  4. PROBENECID [Concomitant]
     Dosage: 500 MG, UNK
     Route: 048
  5. SODIUM BICARBONATE [Suspect]
     Dosage: UNK
     Dates: start: 20110316, end: 20110316
  6. CETIRIZINE [Concomitant]
     Indication: HYPERSENSITIVITY
     Dosage: 10 MG, UNK
     Route: 048
  7. COLLAGENASE CLOSTRIDIUM HISTOLYTICUM [Suspect]
     Indication: DUPUYTREN'S CONTRACTURE
     Dosage: 0.58 MG, 1X/DAY
     Route: 026
     Dates: start: 20110315, end: 20110315
  8. LIDOCAINE HYDROCHLORIDE [Suspect]
     Dosage: UNK
     Dates: start: 20110316, end: 20110316
  9. LOPRESSOR [Concomitant]
     Indication: HYPERTENSION
     Dosage: 50 MG, UNK
     Route: 048

REACTIONS (6)
  - OEDEMA PERIPHERAL [None]
  - BLISTER [None]
  - HAEMORRHAGE SUBCUTANEOUS [None]
  - ECCHYMOSIS [None]
  - LACERATION [None]
  - PAIN [None]
